FAERS Safety Report 5103114-6 (Version None)
Quarter: 2006Q3

REPORT INFORMATION
  Report Type: 
  Country: None (occurrence: None)
  Receive Date: 20060908
  Receipt Date: 20060828
  Transmission Date: 20061208
  Serious: Yes (Hospitalization)
  Sender: FDA-Public Use
  Company Number: UA-2006-025139

PATIENT
  Age: 49 Year
  Sex: Female

DRUGS (1)
  1. MIRENA [Suspect]
     Indication: UTERINE HAEMORRHAGE
     Dosage: 20 UG, CONT, INTRA-UTERINE
     Route: 015
     Dates: start: 20060101, end: 20060501

REACTIONS (1)
  - UTERINE ENLARGEMENT [None]
